FAERS Safety Report 18572157 (Version 1)
Quarter: 2020Q4

REPORT INFORMATION
  Report Type: Spontaneous
  Country: US (occurrence: US)
  Receive Date: 20201203
  Receipt Date: 20201203
  Transmission Date: 20210114
  Serious: No
  Sender: FDA-Public Use
  Company Number: US-SA-2020SA311621

PATIENT

DRUGS (5)
  1. TYLENOL [Concomitant]
     Active Substance: ACETAMINOPHEN
  2. NAPROXEN. [Concomitant]
     Active Substance: NAPROXEN
  3. AMITRIPTYLINE HYDROCHLORIDE. [Concomitant]
     Active Substance: AMITRIPTYLINE HYDROCHLORIDE
  4. TRAMADOL. [Concomitant]
     Active Substance: TRAMADOL
  5. DUPIXENT [Suspect]
     Active Substance: DUPILUMAB
     Indication: SINUS POLYP
     Dosage: 300 MG, QOW
     Route: 058
     Dates: start: 20200306

REACTIONS (1)
  - Injection site reaction [Unknown]

NARRATIVE: CASE EVENT DATE: 20201125
